FAERS Safety Report 9862484 (Version 2)
Quarter: 2014Q1

REPORT INFORMATION
  Report Type: Spontaneous
  Country: FR (occurrence: FR)
  Receive Date: 20140203
  Receipt Date: 20140206
  Transmission Date: 20141002
  Serious: Yes (Other)
  Sender: FDA-Public Use
  Company Number: FR-009507513-1401FRA013966

PATIENT
  Age: 40 Year
  Sex: Female

DRUGS (4)
  1. NEXPLANON [Suspect]
     Indication: CONTRACEPTION
     Dosage: UNK
     Route: 059
     Dates: end: 201309
  2. TEGRETOL [Suspect]
     Dosage: UNK
     Dates: end: 201306
  3. BI-PROFENID [Suspect]
     Dosage: UNK
     Dates: end: 20130926
  4. DAFALGAN CODEINE [Suspect]

REACTIONS (5)
  - Caesarean section [Unknown]
  - Premature baby [Recovering/Resolving]
  - Pre-eclampsia [Unknown]
  - Unintended pregnancy [Recovered/Resolved]
  - Pain in jaw [Unknown]
